FAERS Safety Report 25578766 (Version 1)
Quarter: 2025Q3

REPORT INFORMATION
  Report Type: Spontaneous
  Country: GB (occurrence: GB)
  Receive Date: 20250718
  Receipt Date: 20250718
  Transmission Date: 20251020
  Serious: Yes (Life-Threatening, Hospitalization, Other)
  Sender: ELI LILLY AND COMPANY
  Company Number: None

PATIENT
  Age: 48 Year
  Sex: Female
  Weight: 70 kg

DRUGS (1)
  1. MOUNJARO [Suspect]
     Active Substance: TIRZEPATIDE
     Indication: Weight control
     Route: 065
     Dates: start: 20240615, end: 20250415

REACTIONS (8)
  - Abdominal pain upper [Recovering/Resolving]
  - Pancreatic cyst [Recovering/Resolving]
  - Alopecia [Recovering/Resolving]
  - Lymphadenopathy [Not Recovered/Not Resolved]
  - Cholelithiasis [Unknown]
  - Phlebitis [Unknown]
  - Hair texture abnormal [Unknown]
  - Diarrhoea [Unknown]

NARRATIVE: CASE EVENT DATE: 20250423
